FAERS Safety Report 13591244 (Version 1)
Quarter: 2017Q2

REPORT INFORMATION
  Report Type: Spontaneous
  Country: GB (occurrence: GB)
  Receive Date: 20170530
  Receipt Date: 20170530
  Transmission Date: 20170830
  Serious: Yes (Disabling, Other)
  Sender: FDA-Public Use
  Company Number: GB-PFIZER INC-2017233606

PATIENT
  Age: 60 Year
  Sex: Female
  Weight: 63 kg

DRUGS (4)
  1. PROZAC [Interacting]
     Active Substance: FLUOXETINE HYDROCHLORIDE
     Dosage: UNK
  2. IBUPROFEN. [Concomitant]
     Active Substance: IBUPROFEN
     Dosage: UNK
  3. DOXYCYCLINE MONOHYDRATE [Suspect]
     Active Substance: DOXYCYCLINE
     Indication: EAR INFECTION
     Dosage: 100 MG, 2X/DAY
     Route: 048
     Dates: start: 20170419, end: 20170503
  4. EVENING PRIMROSE OIL [Concomitant]
     Active Substance: EVENING PRIMROSE OIL
     Dosage: UNK

REACTIONS (5)
  - Mood altered [Unknown]
  - Ageusia [Unknown]
  - Dyspepsia [Recovered/Resolved]
  - Inhibitory drug interaction [Recovered/Resolved]
  - Decreased appetite [Unknown]

NARRATIVE: CASE EVENT DATE: 20170420
